FAERS Safety Report 5585204-7 (Version None)
Quarter: 2008Q1

REPORT INFORMATION
  Report Type: 
  Country: None (occurrence: None)
  Receive Date: 20080109
  Receipt Date: 20071231
  Transmission Date: 20080703
  Serious: Yes (Hospitalization)
  Sender: FDA-Public Use
  Company Number: PHHO2007ES21148

PATIENT
  Age: 46 Year
  Sex: Female

DRUGS (1)
  1. AMN107 [Suspect]
     Indication: CHRONIC MYELOID LEUKAEMIA
     Dosage: 800 MG, UNK
     Route: 048
     Dates: start: 20071122, end: 20071214

REACTIONS (3)
  - CHRONIC MYELOID LEUKAEMIA [None]
  - PERITONSILLAR ABSCESS [None]
  - PYREXIA [None]
